FAERS Safety Report 11011021 (Version 10)
Quarter: 2016Q1

REPORT INFORMATION
  Report Type: Spontaneous
  Country: US (occurrence: US)
  Receive Date: 20150410
  Receipt Date: 20160308
  Transmission Date: 20160525
  Serious: No
  Sender: FDA-Public Use
  Company Number: US-PFIZER INC-2015106387

PATIENT
  Age: 67 Year
  Sex: Male
  Weight: 98 kg

DRUGS (5)
  1. ZANTAC [Concomitant]
     Active Substance: RANITIDINE HYDROCHLORIDE
     Dosage: UNK
     Dates: start: 20150430
  2. SUTENT [Suspect]
     Active Substance: SUNITINIB MALATE
     Indication: HEPATIC NEOPLASM
     Dosage: 37.5 MG, DAILY, 14 DAYS THEN OFF FOR 7 DAYS
     Route: 048
     Dates: start: 2015
  3. SUTENT [Suspect]
     Active Substance: SUNITINIB MALATE
     Indication: METASTATIC RENAL CELL CARCINOMA
     Dosage: 50 MG, DAILY, 2 WEEKS ON AND 1 WEEK OFF
     Route: 048
     Dates: start: 201503, end: 2015
  4. SUTENT [Suspect]
     Active Substance: SUNITINIB MALATE
     Dosage: 37.5 MG, CYCLIC (ONCE A DAY FOR 14 DAYS AND THEN STOP FOR 7 DAYS AND AGAIN STARTED THE MEDICATION F)
     Route: 048
     Dates: end: 201512
  5. MAGNESIUM CITRATE. [Concomitant]
     Active Substance: MAGNESIUM CITRATE
     Indication: CONSTIPATION
     Dosage: UNK, AS NEEDED

REACTIONS (10)
  - Fatigue [Recovered/Resolved]
  - Cough [Recovered/Resolved]
  - Dyspepsia [Unknown]
  - Disease progression [Unknown]
  - Weight decreased [Unknown]
  - Metastatic renal cell carcinoma [Unknown]
  - Blood test abnormal [Unknown]
  - Constipation [Recovered/Resolved]
  - Memory impairment [Unknown]
  - Feeling abnormal [Recovered/Resolved]

NARRATIVE: CASE EVENT DATE: 2015
